FAERS Safety Report 4550591-5 (Version None)
Quarter: 2004Q4

REPORT INFORMATION
  Report Type: 
  Country: None (occurrence: None)
  Receive Date: 20041227
  Receipt Date: 20041103
  Transmission Date: 20050328
  Serious: No
  Sender: FDA-Public Use
  Company Number: 04P-163-0279948-00

PATIENT
  Age: 52 Year
  Sex: Female
  Weight: 81.6475 kg

DRUGS (10)
  1. HUMIRA [Suspect]
     Indication: RHEUMATOID ARTHRITIS
     Dosage: 40 MG, 1 IN 2 WK, SUBCUTANEOUS
     Route: 058
     Dates: start: 20040913
  2. METHOTREXATE SODIUM [Concomitant]
  3. PREDNISONE [Concomitant]
  4. ATORVASTATIN [Concomitant]
  5. METOPROLOL [Concomitant]
  6. DETROL LA [Concomitant]
  7. ALENDRONATE SODIUM [Concomitant]
  8. MULTI-VITAMINS [Concomitant]
  9. ACETYLSALICYLIC ACID SRT [Concomitant]
  10. FOLIC ACID [Concomitant]

REACTIONS (3)
  - INJECTION SITE ERYTHEMA [None]
  - INJECTION SITE NODULE [None]
  - INJECTION SITE WARMTH [None]
